FAERS Safety Report 9859425 (Version 3)
Quarter: 2014Q1

REPORT INFORMATION
  Report Type: Spontaneous
  Country: CH (occurrence: CH)
  Receive Date: 20140131
  Receipt Date: 20140204
  Transmission Date: 20141002
  Serious: Yes (Other)
  Sender: FDA-Public Use
  Company Number: PHHY2014CH004564

PATIENT
  Age: 44 Year
  Sex: Female

DRUGS (2)
  1. TRILEPTAL [Suspect]
     Indication: VERTIGO
     Dosage: 150 MG, BID
     Route: 048
     Dates: start: 20131102, end: 20131104
  2. ATENOLOL [Concomitant]
     Dosage: 0.5 DF, UNK

REACTIONS (7)
  - Candida infection [Unknown]
  - Genital pain [Not Recovered/Not Resolved]
  - Genital paraesthesia [Not Recovered/Not Resolved]
  - Genital burning sensation [Unknown]
  - Rash [Not Recovered/Not Resolved]
  - Metabolic disorder [Unknown]
  - Hypersensitivity [Unknown]
